FAERS Safety Report 8884612 (Version 1)
Quarter: 2012Q4

REPORT INFORMATION
  Report Type: 
  Country: US (occurrence: US)
  Receive Date: 20121102
  Receipt Date: 20121102
  Transmission Date: 20130627
  Serious: Yes (Hospitalization, Other)
  Sender: FDA-Public Use
  Company Number: US-FRI-1000039857

PATIENT
  Age: 33 Year
  Sex: Female

DRUGS (10)
  1. VIIBRYD [Suspect]
     Indication: DEPRESSION
     Dosage: 10MG
     Route: 048
     Dates: start: 20120430, end: 20120506
  2. VIIBRYD [Suspect]
     Dosage: 20MG
     Route: 048
     Dates: start: 20120507, end: 20120604
  3. VIIBRYD [Suspect]
     Dosage: 30MG
     Route: 048
     Dates: start: 20120605, end: 20120705
  4. VIIBRYD [Suspect]
     Indication: DEPRESSION
     Dosage: 40MG
     Route: 048
     Dates: start: 20120706, end: 20120926
  5. TOPAMAX [Suspect]
     Indication: MIGRAINE
     Dates: start: 20120605, end: 20120605
  6. DOXYCYCLINE [Concomitant]
     Indication: LARYNGITIS
     Dates: start: 20120719, end: 2012
  7. ALPRAZOLAM [Concomitant]
     Indication: ANXIETY
     Dates: start: 201103, end: 20120926
  8. OMEPRAZOLE [Concomitant]
     Indication: GASTROOESOPHAGEAL REFLUX DISEASE
     Dates: start: 201103, end: 20120926
  9. VERAPAMIL [Concomitant]
     Indication: MIGRAINE
     Dates: start: 20120801, end: 20120926
  10. METFORMIN [Concomitant]
     Indication: POLYCYSTIC OVARIES
     Dates: start: 201207, end: 20120926

REACTIONS (13)
  - Toxicity to various agents [Not Recovered/Not Resolved]
  - Aphasia [Not Recovered/Not Resolved]
  - Vision blurred [Not Recovered/Not Resolved]
  - Memory impairment [Not Recovered/Not Resolved]
  - Drooling [Recovered/Resolved]
  - Slow speech [Not Recovered/Not Resolved]
  - Bradyphrenia [Not Recovered/Not Resolved]
  - Movement disorder [Not Recovered/Not Resolved]
  - Menstruation irregular [Recovered/Resolved]
  - Dysmenorrhoea [Recovered/Resolved]
  - Somnolence [Not Recovered/Not Resolved]
  - Exposure during pregnancy [Not Recovered/Not Resolved]
  - Hallucination [Recovered/Resolved]
